FAERS Safety Report 7539071 (Version 4)
Quarter: 2013Q4

REPORT INFORMATION
  Report Type: Spontaneous
  Country: US (occurrence: US)
  Receive Date: 20100812
  Receipt Date: 20131203
  Transmission Date: 20140711
  Serious: Yes (Other)
  Sender: FDA-Public Use
  Company Number: US-BAYER-201030265NA

PATIENT
  Age: 40 Year
  Sex: Female
  Weight: 59.09 kg

DRUGS (3)
  1. YASMIN [Suspect]
     Dosage: UNK
     Route: 048
     Dates: start: 200207, end: 200709
  2. ADVIL [Concomitant]
     Indication: HEADACHE
  3. PRILOSEC [Concomitant]
     Indication: DYSPEPSIA

REACTIONS (5)
  - Gallbladder injury [Unknown]
  - Biliary dyskinesia [None]
  - Abdominal pain [Unknown]
  - Nausea [Unknown]
  - Emotional distress [Unknown]
